FAERS Safety Report 4579723-X (Version None)
Quarter: 2005Q1

REPORT INFORMATION
  Report Type: 
  Country: None (occurrence: None)
  Receive Date: 20050210
  Receipt Date: 20050210
  Transmission Date: 20050727
  Serious: No
  Sender: FDA-Public Use
  Company Number: None

PATIENT
  Sex: Male

DRUGS (4)
  1. FLOMAX [Suspect]
     Indication: DYSURIA
     Dates: start: 20040601, end: 20050201
  2. NAPROXEN [Concomitant]
  3. LISINOPRIL [Concomitant]
  4. NORVASC [Concomitant]

REACTIONS (2)
  - IRIDOCELE [None]
  - PROCEDURAL COMPLICATION [None]
